FAERS Safety Report 14432360 (Version 2)
Quarter: 2018Q4

REPORT INFORMATION
  Report Type: Spontaneous
  Country: IT (occurrence: IT)
  Receive Date: 20180124
  Receipt Date: 20181126
  Transmission Date: 20190204
  Serious: Yes (Hospitalization)
  Sender: FDA-Public Use
  Company Number: IT-PFIZER INC-2018031702

PATIENT
  Age: 70 Year
  Sex: Male

DRUGS (3)
  1. LYRICA [Suspect]
     Active Substance: PREGABALIN
     Indication: GENERALISED NON-CONVULSIVE EPILEPSY
     Dosage: UNK
     Route: 048
     Dates: start: 20170503, end: 20170625
  2. BRINTELLIX [Concomitant]
     Active Substance: VORTIOXETINE HYDROBROMIDE
     Dosage: UNK
  3. XANAX [Suspect]
     Active Substance: ALPRAZOLAM
     Indication: ANXIETY
     Dosage: UNK
     Route: 048
     Dates: start: 20170503, end: 20170625

REACTIONS (2)
  - Tremor [Unknown]
  - Epilepsy [Unknown]

NARRATIVE: CASE EVENT DATE: 20170625
